FAERS Safety Report 21097097 (Version 1)
Quarter: 2022Q3

REPORT INFORMATION
  Report Type: Spontaneous
  Country: JP (occurrence: JP)
  Receive Date: 20220719
  Receipt Date: 20220719
  Transmission Date: 20221027
  Serious: Yes (Death, Other)
  Sender: FDA-Public Use
  Company Number: JP-SUN PHARMACEUTICAL INDUSTRIES LTD-2022R1-344945

PATIENT
  Age: 74 Year
  Sex: Male

DRUGS (5)
  1. OXALIPLATIN [Suspect]
     Active Substance: OXALIPLATIN
     Indication: Rectal cancer metastatic
     Dosage: 85 MILLIGRAM/SQ. METER, UNK
     Route: 065
  2. LEUCOVORIN CALCIUM [Suspect]
     Active Substance: LEUCOVORIN CALCIUM
     Indication: Rectal cancer metastatic
     Dosage: 200 MILLIGRAM/SQ. METER, 2-H INFUSION
     Route: 065
  3. FLUOROURACIL [Suspect]
     Active Substance: FLUOROURACIL
     Indication: Rectal cancer metastatic
     Dosage: 400 MILLIGRAM/SQ. METER, UNK
     Route: 065
  4. FLUOROURACIL [Suspect]
     Active Substance: FLUOROURACIL
     Dosage: 2400 MILLIGRAM/SQ. METER, UNK
     Route: 065
  5. DEXAMETHASONE [Concomitant]
     Active Substance: DEXAMETHASONE
     Indication: Premedication
     Dosage: UNK
     Route: 065

REACTIONS (4)
  - Interstitial lung disease [Fatal]
  - Respiratory failure [Fatal]
  - Disease progression [Unknown]
  - Drug hypersensitivity [Unknown]
